FAERS Safety Report 6748553-2 (Version None)
Quarter: 2010Q2

REPORT INFORMATION
  Report Type: 
  Country: None (occurrence: None)
  Receive Date: 20100601
  Receipt Date: 20100519
  Transmission Date: 20101027
  Serious: Yes (Other)
  Sender: FDA-Public Use
  Company Number: US-BAYER-201015414NA

PATIENT
  Age: 49 Year
  Sex: Female
  Weight: 59 kg

DRUGS (8)
  1. YASMIN [Suspect]
     Indication: DRUG USE FOR UNKNOWN INDICATION
     Route: 048
     Dates: start: 20080211, end: 20080222
  2. CALCIUM CARBONATE [Concomitant]
     Dosage: UNIT DOSE: 500 MG
  3. ADVIL LIQUI-GELS [Concomitant]
     Indication: PAIN
     Dosage: UNIT DOSE: 200 MG
  4. CLARITIN [Concomitant]
     Dosage: UNIT DOSE: 10 MG
     Dates: start: 19900101
  5. ZYRTEC [Concomitant]
     Dosage: ON AND OFF
     Dates: start: 20070101
  6. REPLIVA [Concomitant]
     Dates: start: 20080401
  7. ZOLOFT [Concomitant]
     Dosage: UNIT DOSE: 50 MG
     Dates: start: 20091001
  8. HORMONE REPLACEMENT THERAPY [Concomitant]
     Indication: ANAEMIA

REACTIONS (3)
  - DEEP VEIN THROMBOSIS [None]
  - OEDEMA PERIPHERAL [None]
  - PAIN IN EXTREMITY [None]
